FAERS Safety Report 8959459 (Version 3)
Quarter: 2013Q1

REPORT INFORMATION
  Report Type: Report from Study
  Country: US (occurrence: US)
  Receive Date: 20121211
  Receipt Date: 20130329
  Transmission Date: 20140127
  Serious: Yes (Other)
  Sender: FDA-Public Use
  Company Number: US-PURDUE-USA-2012-0096838

PATIENT
  Sex: Female
  Weight: 74.83 kg

DRUGS (4)
  1. OXYCONTIN TABLETS [Suspect]
     Indication: TRIGEMINAL NEURALGIA
     Dosage: 20 MG, UNK
     Route: 048
     Dates: start: 2004
  2. OXYCONTIN TABLETS [Suspect]
     Indication: INTERVERTEBRAL DISC DEGENERATION
     Dosage: 80 MG, UNK
     Route: 048
     Dates: start: 2004, end: 2008
  3. OXYCONTIN TABLETS [Suspect]
     Indication: INTERVERTEBRAL DISC PROTRUSION
     Dosage: UNK
     Route: 048
     Dates: start: 2004, end: 2007
  4. OXYCONTIN TABLETS [Suspect]
     Indication: SCIATICA
     Dosage: 20 MG, UNK
     Route: 048
     Dates: start: 2008, end: 2009

REACTIONS (3)
  - Adrenal disorder [Unknown]
  - Medication residue present [Unknown]
  - Malaise [Unknown]
